FAERS Safety Report 8417241-9 (Version None)
Quarter: 2012Q2

REPORT INFORMATION
  Report Type: 
  Country: None (occurrence: None)
  Receive Date: 20120606
  Receipt Date: 20120531
  Transmission Date: 20120825
  Serious: Yes (Other)
  Sender: FDA-Public Use
  Company Number: CA-ABBOTT-12P-028-0941624-00

PATIENT
  Sex: Male

DRUGS (1)
  1. HUMIRA [Suspect]
     Indication: CROHN'S DISEASE
     Route: 058
     Dates: start: 20101208, end: 20120101

REACTIONS (4)
  - SURGERY [None]
  - CARDIAC DISORDER [None]
  - TERATOMA [None]
  - CHOLECYSTECTOMY [None]
